FAERS Safety Report 9445007 (Version 1)
Quarter: 2013Q3

REPORT INFORMATION
  Report Type: Spontaneous
  Country: DK (occurrence: FR)
  Receive Date: 20130807
  Receipt Date: 20130807
  Transmission Date: 20140515
  Serious: Yes (Life-Threatening)
  Sender: FDA-Public Use
  Company Number: FR-FRI-1000047503

PATIENT
  Age: 20 Year
  Sex: Male

DRUGS (3)
  1. CITALOPRAM [Suspect]
     Dosage: 400 MG
     Route: 048
     Dates: start: 20130705, end: 20130705
  2. XEROQUEL [Suspect]
     Dosage: 16 GRAM
     Route: 048
     Dates: start: 20130705, end: 20130705
  3. TEMESTA [Suspect]
     Dosage: 20 MG
     Route: 048
     Dates: start: 20130705, end: 20130705

REACTIONS (3)
  - Coma [Recovered/Resolved]
  - Tachycardia [Recovered/Resolved]
  - Overdose [Recovered/Resolved]
